FAERS Safety Report 11935631 (Version 2)
Quarter: 2016Q4

REPORT INFORMATION
  Report Type: Spontaneous
  Country: ES (occurrence: ES)
  Receive Date: 20160121
  Receipt Date: 20161214
  Transmission Date: 20170206
  Serious: Yes (Death)
  Sender: FDA-Public Use
  Company Number: ES-JNJFOC-20160115368

PATIENT
  Age: 89 Year

DRUGS (1)
  1. STELARA [Suspect]
     Active Substance: USTEKINUMAB
     Indication: PSORIASIS
     Route: 058
     Dates: start: 20110412, end: 20120228

REACTIONS (1)
  - Carcinoid tumour [Fatal]

NARRATIVE: CASE EVENT DATE: 20130124
